FAERS Safety Report 7577735-5 (Version None)
Quarter: 2011Q2

REPORT INFORMATION
  Report Type: 
  Country: None (occurrence: None)
  Receive Date: 20110628
  Receipt Date: 20110622
  Transmission Date: 20111010
  Serious: Yes (Other)
  Sender: FDA-Public Use
  Company Number: US-PFIZER INC-2011139901

PATIENT
  Sex: Female

DRUGS (2)
  1. MECLIZINE HCL [Suspect]
     Dosage: UNK
  2. ANTIVERT [Suspect]
     Dosage: UNK

REACTIONS (2)
  - VASCULAR GRAFT [None]
  - HEADACHE [None]
